FAERS Safety Report 7820609-2 (Version None)
Quarter: 2011Q4

REPORT INFORMATION
  Report Type: 
  Country: None (occurrence: None)
  Receive Date: 20111018
  Receipt Date: 20111013
  Transmission Date: 20120403
  Serious: Yes (Hospitalization)
  Sender: FDA-Public Use
  Company Number: DE-ABBOTT-11P-062-0864267-00

PATIENT
  Sex: Male

DRUGS (6)
  1. TRUVADA [Suspect]
     Indication: HIV INFECTION
  2. DEXPANTHENOL [Concomitant]
     Indication: ANAL FISSURE
  3. ABILIFY [Concomitant]
     Indication: PRODUCT USED FOR UNKNOWN INDICATION
  4. KALETRA [Suspect]
     Indication: HIV INFECTION
     Dates: start: 20110722
  5. CITALOPRAM [Concomitant]
     Indication: PRODUCT USED FOR UNKNOWN INDICATION
  6. DICLOFENAC [Suspect]
     Indication: PAIN
     Dates: start: 20110701, end: 20110817

REACTIONS (4)
  - ANAL FISSURE [None]
  - OESOPHAGITIS [None]
  - MELAENA [None]
  - BRONCHITIS CHRONIC [None]
